FAERS Safety Report 10612266 (Version 1)
Quarter: 2014Q4

REPORT INFORMATION
  Report Type: Report from Study
  Country: US (occurrence: US)
  Receive Date: 20141127
  Receipt Date: 20141127
  Transmission Date: 20150529
  Serious: Yes (Other)
  Sender: FDA-Public Use
  Company Number: US-ROCHE-1497039

PATIENT
  Age: 72 Year
  Sex: Female

DRUGS (8)
  1. TAXOL [Concomitant]
     Active Substance: PACLITAXEL
  2. TAXOTERE [Concomitant]
     Active Substance: DOCETAXEL
  3. PERJETA [Suspect]
     Active Substance: PERTUZUMAB
     Indication: BREAST CANCER METASTATIC
     Dosage: 3L
     Route: 065
  4. XELODA [Suspect]
     Active Substance: CAPECITABINE
     Indication: BREAST CANCER METASTATIC
     Dosage: 2L
     Route: 065
  5. HERCEPTIN [Suspect]
     Active Substance: TRASTUZUMAB
     Indication: BREAST CANCER METASTATIC
     Dosage: 1L
     Route: 065
  6. HERCEPTIN [Suspect]
     Active Substance: TRASTUZUMAB
     Dosage: 3L
     Route: 065
  7. FASLODEX [Concomitant]
     Active Substance: FULVESTRANT
  8. HERCEPTIN [Suspect]
     Active Substance: TRASTUZUMAB
     Dosage: 2L
     Route: 065

REACTIONS (2)
  - Cardiotoxicity [Unknown]
  - Rash [Unknown]
